FAERS Safety Report 7817510-7 (Version None)
Quarter: 2011Q4

REPORT INFORMATION
  Report Type: 
  Country: None (occurrence: None)
  Receive Date: 20111017
  Receipt Date: 20111007
  Transmission Date: 20120403
  Serious: Yes (Other)
  Sender: FDA-Public Use
  Company Number: US-JNJFOC-20111003947

PATIENT
  Sex: Female
  Weight: 90.72 kg

DRUGS (1)
  1. DOXORUBICIN HCL [Suspect]
     Indication: LEIOMYOSARCOMA
     Route: 058
     Dates: start: 20110501

REACTIONS (3)
  - LEIOMYOSARCOMA RECURRENT [None]
  - INCORRECT ROUTE OF DRUG ADMINISTRATION [None]
  - OFF LABEL USE [None]
